FAERS Safety Report 17923449 (Version 1)
Quarter: 2020Q2

REPORT INFORMATION
  Report Type: Spontaneous
  Country: US (occurrence: US)
  Receive Date: 20200622
  Receipt Date: 20200622
  Transmission Date: 20200714
  Serious: Yes (Death)
  Sender: FDA-Public Use
  Company Number: None

PATIENT
  Age: 76 Year
  Sex: Female
  Weight: 53.96 kg

DRUGS (17)
  1. PROCHLORPERAZINE. [Concomitant]
     Active Substance: PROCHLORPERAZINE
  2. MORPHINE [Concomitant]
     Active Substance: MORPHINE
  3. DEXAMETHASONE. [Concomitant]
     Active Substance: DEXAMETHASONE
  4. LEXAPRO [Concomitant]
     Active Substance: ESCITALOPRAM OXALATE
  5. XANAX [Concomitant]
     Active Substance: ALPRAZOLAM
  6. MIRALAX [Concomitant]
     Active Substance: POLYETHYLENE GLYCOL 3350
  7. LIDOCAINE. [Concomitant]
     Active Substance: LIDOCAINE
  8. CALCIUM [Concomitant]
     Active Substance: CALCIUM
  9. CAPECITABINE. [Suspect]
     Active Substance: CAPECITABINE
     Indication: BREAST CANCER
     Route: 048
     Dates: start: 20190528, end: 20200622
  10. OXYCODONE [Concomitant]
     Active Substance: OXYCODONE
  11. PRAVASTATIN. [Concomitant]
     Active Substance: PRAVASTATIN
  12. MAG-OXIDE [Concomitant]
     Active Substance: MAGNESIUM OXIDE
  13. COREG [Concomitant]
     Active Substance: CARVEDILOL
  14. DOXYCYCLINE. [Concomitant]
     Active Substance: DOXYCYCLINE
  15. MELATONIN [Concomitant]
     Active Substance: MELATONIN
  16. PLAVIX [Concomitant]
     Active Substance: CLOPIDOGREL BISULFATE
  17. ALLOPURINOL. [Concomitant]
     Active Substance: ALLOPURINOL

REACTIONS (1)
  - Death [None]

NARRATIVE: CASE EVENT DATE: 20200622
